FAERS Safety Report 16280193 (Version 2)
Quarter: 2019Q2

REPORT INFORMATION
  Report Type: Report from Study
  Country: None (occurrence: TR)
  Receive Date: 20190507
  Receipt Date: 20190509
  Transmission Date: 20190711
  Serious: Yes (Other)
  Sender: FDA-Public Use
  Company Number: TR-ABBVIE-19S-161-2768944-00

PATIENT
  Age: 66 Year
  Sex: Male
  Weight: 90 kg

DRUGS (1)
  1. DUODOPA [Suspect]
     Active Substance: CARBIDOPA\LEVODOPA
     Indication: PARKINSON^S DISEASE
     Dosage: MD: 8.30 ML, CD: 4.30 ML, ED: 2.30 ML
     Route: 050
     Dates: start: 20160412

REACTIONS (1)
  - Gastric mucosal lesion [Not Recovered/Not Resolved]

NARRATIVE: CASE EVENT DATE: 20190430
